FAERS Safety Report 13468891 (Version 1)
Quarter: 2017Q2

REPORT INFORMATION
  Report Type: Spontaneous
  Country: JP (occurrence: JP)
  Receive Date: 20170421
  Receipt Date: 20170421
  Transmission Date: 20170830
  Serious: Yes (Death)
  Sender: FDA-Public Use
  Company Number: JP-PFIZER INC-2017174869

PATIENT
  Age: 88 Year

DRUGS (1)
  1. VFEND [Suspect]
     Active Substance: VORICONAZOLE
     Indication: BRONCHOPULMONARY ASPERGILLOSIS
     Dosage: 400 MG, DAILY
     Route: 048
     Dates: start: 20170403

REACTIONS (2)
  - Pneumonia aspiration [Fatal]
  - Condition aggravated [Fatal]
